FAERS Safety Report 19783698 (Version 1)
Quarter: 2021Q3

REPORT INFORMATION
  Report Type: Spontaneous
  Country: US (occurrence: US)
  Receive Date: 20210901
  Receipt Date: 20210901
  Transmission Date: 20211014
  Serious: Yes (Hospitalization)
  Sender: FDA-Public Use
  Company Number: None

PATIENT
  Sex: Female

DRUGS (2)
  1. DALFAMPRIDINE ER 10MG AUROBINDO PHARMA [Suspect]
     Active Substance: DALFAMPRIDINE
     Indication: MULTIPLE SCLEROSIS
     Route: 048
     Dates: start: 20201125, end: 202102
  2. MAVENCLAD [Suspect]
     Active Substance: CLADRIBINE
     Indication: MULTIPLE SCLEROSIS
     Route: 048
     Dates: start: 202001

REACTIONS (11)
  - Dyspnoea [None]
  - Condition aggravated [None]
  - Visual impairment [None]
  - Paraesthesia [None]
  - Chest discomfort [None]
  - Fatigue [None]
  - Lymphocyte count decreased [None]
  - Gait disturbance [None]
  - Dehydration [None]
  - Hypoaesthesia [None]
  - Asthenia [None]
